FAERS Safety Report 4313373-5 (Version None)
Quarter: 2004Q1

REPORT INFORMATION
  Report Type: 
  Country: None (occurrence: None)
  Receive Date: 20040305
  Receipt Date: 20040305
  Transmission Date: 20041129
  Serious: Yes (Life-Threatening)
  Sender: FDA-Public Use
  Company Number: None

PATIENT
  Age: 62 Year
  Sex: Female
  Weight: 70.7611 kg

DRUGS (1)
  1. RITUXAN [Suspect]
     Indication: LYMPHOMA
     Dosage: 637 MG Q 3 WKS
     Dates: start: 20040120

REACTIONS (2)
  - EYE PRURITUS [None]
  - SENSATION OF FOREIGN BODY [None]
